FAERS Safety Report 6292937-6 (Version None)
Quarter: 2009Q3

REPORT INFORMATION
  Report Type: 
  Country: None (occurrence: None)
  Receive Date: 20090731
  Receipt Date: 20090720
  Transmission Date: 20100115
  Serious: Yes (Hospitalization)
  Sender: FDA-Public Use
  Company Number: CA-PFIZER INC-2009229738

PATIENT
  Age: 36 Year

DRUGS (6)
  1. ZELDOX [Suspect]
     Indication: SCHIZOPHRENIA
     Dosage: 160 MG, UNK
     Route: 048
  2. ZELDOX [Suspect]
     Dosage: 200 MG, (80MG AM, 120MG PM)
     Route: 048
     Dates: start: 20090601
  3. ALL OTHER NON-THERAPEUTIC PRODUCTS [Suspect]
  4. HYDROXYZINE [Concomitant]
     Indication: ANXIETY
     Dosage: 50 MG, 4X/DAY
     Dates: start: 20090702
  5. LORAZEPAM [Concomitant]
     Indication: ANXIETY
     Dosage: 1 MG, 4X/DAY
     Route: 048
     Dates: start: 20040101
  6. EFFEXOR XR [Concomitant]
     Indication: ANXIETY
     Dosage: 75 MG, 1X/DAY
     Route: 048
     Dates: start: 20090501

REACTIONS (5)
  - AGITATION [None]
  - ANXIETY [None]
  - DRUG INEFFECTIVE [None]
  - PARANOIA [None]
  - PSYCHOTIC DISORDER [None]
